FAERS Safety Report 7765410-3 (Version None)
Quarter: 2011Q3

REPORT INFORMATION
  Report Type: 
  Country: None (occurrence: None)
  Receive Date: 20110921
  Receipt Date: 20110913
  Transmission Date: 20111222
  Serious: Yes (Hospitalization, Disabling, Other)
  Sender: FDA-Public Use
  Company Number: US-MERCK-1006USA02170

PATIENT
  Age: 70 Year
  Sex: Female
  Weight: 62 kg

DRUGS (4)
  1. FOSAMAX PLUS D [Suspect]
     Indication: OSTEOPENIA
     Route: 048
     Dates: start: 20011001, end: 20040701
  2. FOSAMAX PLUS D [Suspect]
     Indication: OSTEOPOROSIS
     Route: 048
     Dates: start: 20011001, end: 20040701
  3. FOSAMAX [Suspect]
     Route: 048
     Dates: start: 20010201, end: 20071201
  4. CALCIUM (UNSPECIFIED) [Concomitant]
     Indication: OSTEOPOROSIS
     Route: 065

REACTIONS (15)
  - BREAST FIBROSIS [None]
  - HYPERLIPIDAEMIA [None]
  - CERVICAL POLYP [None]
  - OSTEONECROSIS OF JAW [None]
  - ENDOMETRIAL HYPOPLASIA [None]
  - JAW DISORDER [None]
  - KYPHOSCOLIOSIS [None]
  - CHRONIC OBSTRUCTIVE PULMONARY DISEASE [None]
  - OVARIAN CYST [None]
  - PATHOLOGICAL FRACTURE [None]
  - PULMONARY FIBROSIS [None]
  - ADNEXA UTERI MASS [None]
  - CYSTITIS [None]
  - TOOTH FRACTURE [None]
  - GINGIVITIS [None]
